FAERS Safety Report 9284009 (Version 1)
Quarter: 2013Q2

REPORT INFORMATION
  Report Type: Spontaneous
  Country: US (occurrence: None)
  Receive Date: 20130503
  Receipt Date: 20130503
  Transmission Date: 20140414
  Serious: Yes (Hospitalization)
  Sender: FDA-Public Use
  Company Number: SP06612

PATIENT
  Age: 51 Year
  Sex: Female
  Weight: 81.65 kg

DRUGS (1)
  1. XIFAXAN [Suspect]
     Indication: HEPATITIS
     Dosage: (550 MG, 2 IN 1 D)
     Route: 048

REACTIONS (2)
  - Unresponsive to stimuli [None]
  - Ammonia increased [None]
